FAERS Safety Report 5677911-2 (Version None)
Quarter: 2008Q1

REPORT INFORMATION
  Report Type: 
  Country: None (occurrence: None)
  Receive Date: 20080319
  Receipt Date: 20080305
  Transmission Date: 20080703
  Serious: Yes (Other)
  Sender: FDA-Public Use
  Company Number: 232251J08USA

PATIENT
  Age: 41 Year
  Sex: Female
  Weight: 113.3993 kg

DRUGS (4)
  1. REBIF [Suspect]
     Indication: MULTIPLE SCLEROSIS
     Dosage: 44 MCG, 3 IN 1 WEEKS, SUBCUTANEOUS
     Route: 058
     Dates: start: 20020101, end: 20080101
  2. BACLOFEN [Concomitant]
  3. PRIMIDONE [Concomitant]
  4. AMANTADINE (AMANTADINE /00055901/) [Concomitant]

REACTIONS (1)
  - DIABETES MELLITUS [None]
